FAERS Safety Report 17318182 (Version 1)
Quarter: 2020Q1

REPORT INFORMATION
  Report Type: Report from Study
  Country: CA (occurrence: CA)
  Receive Date: 20200124
  Receipt Date: 20200124
  Transmission Date: 20200409
  Serious: Yes (Other)
  Sender: FDA-Public Use
  Company Number: CA-JNJFOC-20200102749

PATIENT
  Age: 28 Year
  Sex: Female
  Weight: 59 kg

DRUGS (2)
  1. STELARA [Suspect]
     Active Substance: USTEKINUMAB
     Indication: CROHN^S DISEASE
     Dosage: STRENGTH = 130 MG
     Route: 042
     Dates: start: 20191121
  2. STELARA [Suspect]
     Active Substance: USTEKINUMAB
     Dosage: STRENGTH = 130 MG
     Route: 058
     Dates: start: 20191121

REACTIONS (5)
  - Off label use [Unknown]
  - Kidney infection [Recovering/Resolving]
  - Crohn^s disease [Not Recovered/Not Resolved]
  - Product use issue [Unknown]
  - Therapeutic product effect incomplete [Unknown]

NARRATIVE: CASE EVENT DATE: 2019
